FAERS Safety Report 7762348-2 (Version None)
Quarter: 2011Q3

REPORT INFORMATION
  Report Type: 
  Country: None (occurrence: None)
  Receive Date: 20110825
  Receipt Date: 20110623
  Transmission Date: 20111222
  Serious: No
  Sender: FDA-Public Use
  Company Number: 330544

PATIENT
  Sex: Female

DRUGS (1)
  1. VICTOZA [Suspect]
     Indication: WEIGHT DECREASED
     Dosage: SUBCUTANEOUS
     Route: 058
     Dates: end: 20110621

REACTIONS (2)
  - DRUG INEFFECTIVE [None]
  - CROHN'S DISEASE [None]
